FAERS Safety Report 9593025 (Version 2)
Quarter: 2013Q4

REPORT INFORMATION
  Report Type: Spontaneous
  Country: US (occurrence: US)
  Receive Date: 20131004
  Receipt Date: 20131023
  Transmission Date: 20140711
  Serious: Yes (Other)
  Sender: FDA-Public Use
  Company Number: US-UCBSA-098984

PATIENT
  Age: 55 Year
  Sex: Female

DRUGS (3)
  1. CIMZIA [Suspect]
     Indication: RHEUMATOID ARTHRITIS
     Dosage: 400 MG EVREY MONTH
     Dates: start: 20130502, end: 20130612
  2. SYNTHROID [Concomitant]
  3. METHOTREXATE [Concomitant]

REACTIONS (2)
  - Upper respiratory tract infection [Recovering/Resolving]
  - Skin striae [Recovering/Resolving]
